FAERS Safety Report 12274522 (Version 1)
Quarter: 2016Q2

REPORT INFORMATION
  Report Type: Spontaneous
  Country: US (occurrence: US)
  Receive Date: 20160415
  Receipt Date: 20160415
  Transmission Date: 20160815
  Serious: No
  Sender: FDA-Public Use
  Company Number: US-ALLERGAN-1505553US

PATIENT
  Age: 53 Year
  Sex: Female

DRUGS (1)
  1. LUMIGAN [Suspect]
     Active Substance: BIMATOPROST
     Indication: GLAUCOMA
     Dosage: 2 DROPS EACH EYE QHS
     Route: 047
     Dates: start: 20150320

REACTIONS (7)
  - Throat tightness [Recovered/Resolved]
  - Obstructive airways disorder [Recovered/Resolved]
  - Hypoaesthesia eye [Recovered/Resolved]
  - Miosis [Recovered/Resolved]
  - Hypoaesthesia oral [Recovered/Resolved]
  - Scleral hyperaemia [Recovered/Resolved]
  - Dysgeusia [Recovered/Resolved]

NARRATIVE: CASE EVENT DATE: 20150323
